FAERS Safety Report 14480972 (Version 1)
Quarter: 2018Q1

REPORT INFORMATION
  Report Type: Spontaneous
  Country: US (occurrence: US)
  Receive Date: 20180201
  Receipt Date: 20180201
  Transmission Date: 20180509
  Serious: Yes (Other)
  Sender: FDA-Public Use
  Company Number: None

PATIENT
  Age: 28 Year
  Sex: Male
  Weight: 96.75 kg

DRUGS (8)
  1. HYDROCORTISONE. [Suspect]
     Active Substance: HYDROCORTISONE
     Indication: HORMONE LEVEL ABNORMAL
     Dosage: ?          QUANTITY:180 TABLET(S);?
     Route: 048
     Dates: start: 20180101, end: 20180131
  2. PREDNISONE. [Suspect]
     Active Substance: PREDNISONE
  3. FLUDROCORTISONE [Suspect]
     Active Substance: FLUDROCORTISONE
  4. DEXAMETHASONE. [Suspect]
     Active Substance: DEXAMETHASONE
  5. NUTROPIN [Suspect]
     Active Substance: SOMATROPIN
  6. WELLBUTRIN [Concomitant]
     Active Substance: BUPROPION HYDROCHLORIDE
  7. TESTOSTERONE ENANTHATE. [Concomitant]
     Active Substance: TESTOSTERONE ENANTHATE
  8. LIOTHYRONINE [Concomitant]
     Active Substance: LIOTHYRONINE

REACTIONS (3)
  - Product tampering [None]
  - Product physical issue [None]
  - Underdose [None]

NARRATIVE: CASE EVENT DATE: 20180131
